FAERS Safety Report 8328921-8 (Version None)
Quarter: 2012Q2

REPORT INFORMATION
  Report Type: 
  Country: None (occurrence: None)
  Receive Date: 20120502
  Receipt Date: 20100927
  Transmission Date: 20120825
  Serious: No
  Sender: FDA-Public Use
  Company Number: US-TEVA-2010005150

PATIENT
  Age: 26 Year
  Sex: Male

DRUGS (3)
  1. PROVIGIL [Suspect]
     Route: 048
     Dates: start: 20100101
  2. NUVIGIL [Suspect]
     Route: 048
     Dates: start: 20100701
  3. NUVIGIL [Suspect]
     Route: 048
     Dates: start: 20100101

REACTIONS (1)
  - DENTAL CARIES [None]
